FAERS Safety Report 8818729 (Version 2)
Quarter: 2012Q4

REPORT INFORMATION
  Report Type: 
  Country: US (occurrence: US)
  Receive Date: 20121001
  Receipt Date: 20121203
  Transmission Date: 20130627
  Serious: Yes (Death)
  Sender: FDA-Public Use
  Company Number: US-ROCHE-1104084

PATIENT
  Sex: Female

DRUGS (6)
  1. HERCEPTIN [Suspect]
     Indication: BREAST CANCER FEMALE
     Route: 042
     Dates: start: 20010913, end: 20011107
  2. HERCEPTIN [Suspect]
     Route: 042
     Dates: start: 20011107, end: 20020122
  3. HERCEPTIN [Suspect]
     Route: 042
     Dates: start: 20020214, end: 20020411
  4. HERCEPTIN [Suspect]
     Route: 042
     Dates: start: 20020424, end: 20020606
  5. HERCEPTIN [Suspect]
     Route: 042
     Dates: start: 20031204, end: 20040218
  6. HERCEPTIN [Suspect]
     Route: 042
     Dates: start: 20041027, end: 20041229

REACTIONS (1)
  - Disease progression [Fatal]
